FAERS Safety Report 15498412 (Version 1)
Quarter: 2018Q4

REPORT INFORMATION
  Report Type: Spontaneous
  Country: US (occurrence: US)
  Receive Date: 20181005
  Receipt Date: 20181005
  Transmission Date: 20190205
  Serious: Yes (Hospitalization)
  Sender: FDA-Public Use
  Company Number: None

PATIENT
  Age: 73 Year
  Sex: Female

DRUGS (1)
  1. OMEPRAZOLE 40 MG DR CAPSULES [Suspect]
     Active Substance: OMEPRAZOLE
     Indication: CYSTIC FIBROSIS
     Route: 048
     Dates: start: 20150617

REACTIONS (1)
  - Pneumonia [None]

NARRATIVE: CASE EVENT DATE: 20180926
